FAERS Safety Report 8232509-7 (Version None)
Quarter: 2012Q1

REPORT INFORMATION
  Report Type: 
  Country: None (occurrence: None)
  Receive Date: 20120320
  Receipt Date: 20120312
  Transmission Date: 20120608
  Serious: Yes (Hospitalization, Other)
  Sender: FDA-Public Use
  Company Number: ACO_29406_2012

PATIENT
  Age: 52 Year
  Sex: Male
  Weight: 83 kg

DRUGS (7)
  1. REMERON [Concomitant]
  2. ZANAFLEX [Concomitant]
  3. BACLOFEN [Concomitant]
  4. NEURONTIN [Concomitant]
  5. KLONOPIN [Concomitant]
  6. VITAMIN B6 [Concomitant]
  7. AMPYRA [Suspect]
     Indication: GAIT DISTURBANCE
     Dosage: 10 MG, BID, ORAL
     Route: 048
     Dates: start: 20101201

REACTIONS (2)
  - NEPHROLITHIASIS [None]
  - PNEUMONIA STAPHYLOCOCCAL [None]
